FAERS Safety Report 26160183 (Version 1)
Quarter: 2025Q4

REPORT INFORMATION
  Report Type: Spontaneous
  Country: GB (occurrence: GB)
  Receive Date: 20251216
  Receipt Date: 20251216
  Transmission Date: 20260118
  Serious: Yes (Disabling, Other)
  Sender: AUROBINDO
  Company Number: GB-MHRA-EMIS-1580-b44ebda6-f3b9-423c-b08f-f282f0489165

PATIENT
  Age: 67 Year
  Sex: Female
  Weight: 113 kg

DRUGS (8)
  1. ATORVASTATIN [Suspect]
     Active Substance: ATORVASTATIN
     Indication: Product used for unknown indication
     Dosage: 1 DOSAGE FORM, ONCE A DAY
     Route: 065
     Dates: start: 20230102, end: 20250312
  2. PREDNISOLONE [Concomitant]
     Active Substance: PREDNISOLONE
     Indication: Adverse drug reaction
     Dosage: 50 MILLIGRAM, EVERY OTHER DAY (A
     Route: 065
     Dates: start: 20250305, end: 20250424
  3. PREDNISOLONE [Concomitant]
     Active Substance: PREDNISOLONE
     Dosage: 9 MILLIGRAM, EVERY OTHER DAY (4 T
     Route: 065
     Dates: start: 20250522
  4. PREDNISOLONE [Concomitant]
     Active Substance: PREDNISOLONE
     Dosage: 1 DOSAGE FORM (ONE TABLET ALTERNATE
     Route: 065
  5. APIXABAN [Concomitant]
     Active Substance: APIXABAN
     Indication: Product used for unknown indication
     Dosage: 1 DOSAGE FORM, TWO TIMES A DAY
     Route: 065
     Dates: start: 20250306
  6. Enstilar 50micrograms/g / 0.5 mg/g cutaneous foam (LEO Pharma) [Concomitant]
     Indication: Adverse drug reaction
     Dosage: 120 GRAM (APPLY ONCE A DAY TO T
     Route: 065
     Dates: start: 20250312, end: 20250424
  7. Trimovate cream (Ennogen Healthcare International Ltd) [Concomitant]
     Indication: Product used for unknown indication
     Dosage: 30 GRAM APPLY THIN LAYER TWICE DAILY TO
     Route: 065
     Dates: start: 20250402, end: 20250515
  8. Sebco ointment (Derma UK Ltd) [Concomitant]
     Indication: Product used for unknown indication
     Dosage: 120 GRAM (APPLY TO SKIN. LEAVE ON F
     Route: 065
     Dates: start: 20250402, end: 20250515

REACTIONS (3)
  - Myasthenia gravis [Recovering/Resolving]
  - Mastication disorder [Recovering/Resolving]
  - Diplopia [Recovering/Resolving]

NARRATIVE: CASE EVENT DATE: 20230703
